FAERS Safety Report 16924007 (Version 6)
Quarter: 2021Q2

REPORT INFORMATION
  Report Type: Other
  Country: US (occurrence: US)
  Receive Date: 20191016
  Receipt Date: 20210601
  Transmission Date: 20210716
  Serious: Yes (Hospitalization, Other)
  Sender: FDA-Public Use
  Company Number: US-ROCHE-2434409

PATIENT
  Sex: Male
  Weight: 81.72 kg

DRUGS (2)
  1. BACLOFEN. [Concomitant]
     Active Substance: BACLOFEN
     Indication: MUSCLE SPASMS
     Route: 048
  2. OCREVUS [Suspect]
     Active Substance: OCRELIZUMAB
     Indication: RELAPSING-REMITTING MULTIPLE SCLEROSIS
     Dosage: DOT: 19/JAN/2021, 26/MAR/2020, 26/SEP/2019, 26/MAR/2019, 12/SEP/2018,
     Route: 042
     Dates: start: 2017

REACTIONS (19)
  - Diarrhoea [Unknown]
  - Dehydration [Recovered/Resolved]
  - Asthenia [Recovered/Resolved]
  - Immunodeficiency [Unknown]
  - Weight decreased [Not Recovered/Not Resolved]
  - Seasonal allergy [Unknown]
  - Insomnia [Unknown]
  - Depression [Not Recovered/Not Resolved]
  - Pneumonia aspiration [Recovered/Resolved]
  - Cough [Not Recovered/Not Resolved]
  - Off label use [Unknown]
  - Herpes simplex [Not Recovered/Not Resolved]
  - Chronic obstructive pulmonary disease [Not Recovered/Not Resolved]
  - Bipolar disorder [Unknown]
  - Nasopharyngitis [Recovered/Resolved]
  - Visual impairment [Not Recovered/Not Resolved]
  - Urinary tract infection [Not Recovered/Not Resolved]
  - Frequent bowel movements [Unknown]
  - Herpes zoster [Recovered/Resolved]

NARRATIVE: CASE EVENT DATE: 2017
